FAERS Safety Report 15973928 (Version 1)
Quarter: 2019Q1

REPORT INFORMATION
  Report Type: Spontaneous
  Country: US (occurrence: US)
  Receive Date: 20190217
  Receipt Date: 20190217
  Transmission Date: 20190418
  Serious: No
  Sender: FDA-Public Use
  Company Number: US-AMGEN-USASP2019022676

PATIENT
  Age: 12 Month
  Sex: Female
  Weight: 8 kg

DRUGS (2)
  1. EPOGEN [Suspect]
     Active Substance: ERYTHROPOIETIN
     Indication: HYPOGAMMAGLOBULINAEMIA
     Dosage: 4800 UNIT, QWK (INFUSED OVER SLOW INFUSION OVER 15 MINUTES)
     Route: 042
  2. EPOGEN [Suspect]
     Active Substance: ERYTHROPOIETIN
     Indication: NEPHROTIC SYNDROME

REACTIONS (1)
  - Off label use [Unknown]
